FAERS Safety Report 23496509 (Version 2)
Quarter: 2024Q1

REPORT INFORMATION
  Report Type: Spontaneous
  Country: US (occurrence: US)
  Receive Date: 20240208
  Receipt Date: 20240214
  Transmission Date: 20240409
  Serious: Yes (Hospitalization)
  Sender: FDA-Public Use
  Company Number: US-AMNEAL PHARMACEUTICALS-2024-AMRX-00297

PATIENT
  Sex: Male
  Weight: 84.354 kg

DRUGS (2)
  1. RYTARY [Suspect]
     Active Substance: CARBIDOPA\LEVODOPA
     Indication: Parkinson^s disease
     Dosage: 48.75-195 MG, 03 CAPSULES, 3X/DAY
     Route: 048
  2. RYTARY [Suspect]
     Active Substance: CARBIDOPA\LEVODOPA
     Dosage: 61.25/245 MG, 03 CAPSULES, 3X/DAY
     Route: 048
     Dates: start: 20230719

REACTIONS (5)
  - COVID-19 [Unknown]
  - Speech disorder [Unknown]
  - Multiple system atrophy [Unknown]
  - Product use issue [Unknown]
  - Product dose omission issue [Unknown]
